FAERS Safety Report 7213054-4 (Version None)
Quarter: 2011Q1

REPORT INFORMATION
  Report Type: 
  Country: None (occurrence: None)
  Receive Date: 20110106
  Receipt Date: 20101227
  Transmission Date: 20110831
  Serious: Yes (Other)
  Sender: FDA-Public Use
  Company Number: B0691427A

PATIENT
  Age: 56 Year
  Sex: Male

DRUGS (2)
  1. ADEFOVIR DIPIVOXIL KIT [Suspect]
     Dosage: 10MG PER DAY
     Route: 048
  2. LAMIVUDINE [Suspect]
     Indication: CHRONIC HEPATITIS
     Route: 065

REACTIONS (2)
  - DRUG RESISTANCE [None]
  - THROMBOCYTOPENIA [None]
